FAERS Safety Report 6917329-5 (Version None)
Quarter: 2010Q3

REPORT INFORMATION
  Report Type: 
  Country: None (occurrence: None)
  Receive Date: 20100805
  Receipt Date: 20100721
  Transmission Date: 20110219
  Serious: Yes (Life-Threatening)
  Sender: FDA-Public Use
  Company Number: OPTN-PR-1006L-0001

PATIENT
  Age: 65 Year
  Sex: Male

DRUGS (2)
  1. OPTISON [Suspect]
     Indication: SURGERY
     Dosage: 2.5 ML, SINGLE DOSE, I.V.
     Route: 042
     Dates: start: 20070101, end: 20070101
  2. DOBUTAMINE HCL [Suspect]
     Indication: SURGERY
     Dosage: SINGLE DOSE, I.V.
     Route: 042
     Dates: start: 20070101, end: 20070101

REACTIONS (3)
  - MYOCARDIAL INFARCTION [None]
  - POST PROCEDURAL COMPLICATION [None]
  - VENTRICULAR FIBRILLATION [None]
